FAERS Safety Report 24750733 (Version 1)
Quarter: 2024Q4

REPORT INFORMATION
  Report Type: Spontaneous
  Country: US (occurrence: US)
  Receive Date: 20241218
  Receipt Date: 20241218
  Transmission Date: 20250114
  Serious: Yes (Other)
  Sender: PFIZER
  Company Number: US-PFIZER INC-PV202300115227

PATIENT
  Age: 77 Year
  Sex: Female

DRUGS (4)
  1. BRAFTOVI [Suspect]
     Active Substance: ENCORAFENIB
     Indication: Metastases to liver
     Dosage: UNK
     Dates: start: 202303
  2. BRAFTOVI [Suspect]
     Active Substance: ENCORAFENIB
     Indication: Cholangiocarcinoma
     Dosage: 450 MG, DAILY (6 CAPSULES)
     Route: 048
     Dates: start: 20241207
  3. MEKTOVI [Suspect]
     Active Substance: BINIMETINIB
     Indication: Metastases to liver
     Dosage: UNK
     Dates: start: 202303
  4. MEKTOVI [Suspect]
     Active Substance: BINIMETINIB
     Dosage: TAKE 3 TABLETS (45 MG TOTAL) BY MOUTH 2 (TWO) TIMES A DAY
     Route: 048
     Dates: start: 20241207

REACTIONS (4)
  - Thrombocytopenia [Recovered/Resolved]
  - Pancytopenia [Unknown]
  - Fatigue [Unknown]
  - Weight decreased [Unknown]

NARRATIVE: CASE EVENT DATE: 20241107
